FAERS Safety Report 8359500-4 (Version None)
Quarter: 2012Q2

REPORT INFORMATION
  Report Type: 
  Country: None (occurrence: None)
  Receive Date: 20120515
  Receipt Date: 20120507
  Transmission Date: 20120825
  Serious: Yes (Hospitalization)
  Sender: FDA-Public Use
  Company Number: US-BAYER-2012-007423

PATIENT
  Sex: Female
  Weight: 91 kg

DRUGS (8)
  1. YASMIN [Suspect]
     Indication: CONTRACEPTION
     Dosage: UNK
     Dates: start: 20050401, end: 20080701
  2. YASMIN [Suspect]
     Dosage: UNK
     Dates: start: 20081001, end: 20090401
  3. PROAIR HFA [Concomitant]
     Indication: ASTHMA
     Dosage: UNK
     Dates: start: 19900101
  4. CLARINEX [Concomitant]
     Indication: SINUSITIS
     Dosage: UNK
     Dates: start: 19990101
  5. NASONEX [Concomitant]
     Indication: ASTHMA
     Dosage: UNK
     Dates: start: 19900101
  6. DROSPIRENONE AND ETHINYL ESTRADIOL [Suspect]
     Indication: CONTRACEPTION
     Dosage: UNK
     Dates: start: 20080701, end: 20081001
  7. SINGULAIR [Concomitant]
     Indication: ASTHMA
     Dosage: UNK
     Dates: start: 19900101
  8. PREDNISONE [Concomitant]
     Indication: ASTHMA
     Dosage: UNK
     Dates: start: 19900101

REACTIONS (9)
  - PAIN [None]
  - ABDOMINAL PAIN [None]
  - INJURY [None]
  - CHOLELITHIASIS [None]
  - CHOLECYSTITIS CHRONIC [None]
  - EMOTIONAL DISTRESS [None]
  - MENTAL DISORDER [None]
  - GENERAL PHYSICAL HEALTH DETERIORATION [None]
  - ANXIETY [None]
